FAERS Safety Report 16998322 (Version 1)
Quarter: 2019Q4

REPORT INFORMATION
  Report Type: Spontaneous
  Country: US (occurrence: US)
  Receive Date: 20191105
  Receipt Date: 20191105
  Transmission Date: 20200122
  Serious: Yes (Other)
  Sender: FDA-Public Use
  Company Number: US-GILEAD-2019-0435396

PATIENT
  Age: 48 Year
  Sex: Male

DRUGS (3)
  1. ESTRADIOL. [Concomitant]
     Active Substance: ESTRADIOL
  2. TETRACYCLINE [Concomitant]
     Active Substance: TETRACYCLINE
  3. VIREAD [Suspect]
     Active Substance: TENOFOVIR DISOPROXIL FUMARATE
     Indication: HIV INFECTION
     Dosage: UNK
     Route: 065

REACTIONS (3)
  - Chronic kidney disease [Recovering/Resolving]
  - Renal tubular dysfunction [Recovering/Resolving]
  - Osteoporosis [Unknown]
